FAERS Safety Report 5120802-6 (Version None)
Quarter: 2006Q4

REPORT INFORMATION
  Report Type: 
  Country: None (occurrence: None)
  Receive Date: 20061003
  Receipt Date: 20061003
  Transmission Date: 20070319
  Serious: Yes (Other)
  Sender: FDA-Public Use
  Company Number: None

PATIENT
  Age: 15 Year
  Sex: Male
  Weight: 63 kg

DRUGS (15)
  1. BENEFIX [Suspect]
     Indication: FACTOR IX DEFICIENCY
     Dosage: 3000U ~ Q4 DAYS IV
     Route: 042
  2. BENEFIX [Suspect]
     Indication: FACTOR IX DEFICIENCY
     Dosage: 3000U ~ Q4DAYS IV
     Route: 042
  3. BENEFIX [Suspect]
  4. BENEFIX [Suspect]
  5. BENEFIX [Suspect]
  6. BENEFIX [Suspect]
  7. BENEFIX [Suspect]
  8. BENEFIX [Suspect]
  9. BENEFIX [Suspect]
  10. BENEFIX [Suspect]
  11. BENEFIX [Suspect]
  12. ALPHANINE [Suspect]
  13. ALPHANINE [Suspect]
  14. CLARITIN [Concomitant]
  15. LIPITOR [Concomitant]

REACTIONS (6)
  - ADVERSE DRUG REACTION [None]
  - BACK PAIN [None]
  - DRUG HYPERSENSITIVITY [None]
  - PAIN IN EXTREMITY [None]
  - PARAESTHESIA [None]
  - VISION BLURRED [None]
